FAERS Safety Report 11381074 (Version 1)
Quarter: 2015Q3

REPORT INFORMATION
  Report Type: Spontaneous
  Country: US (occurrence: None)
  Receive Date: 20150813
  Receipt Date: 20150813
  Transmission Date: 20151125
  Serious: No
  Sender: FDA-Public Use
  Company Number: None

PATIENT
  Age: 63 Year
  Sex: Female
  Weight: 86.8 kg

DRUGS (6)
  1. HCTZ [Concomitant]
     Active Substance: HYDROCHLOROTHIAZIDE
  2. OMEPRAZOLE. [Concomitant]
     Active Substance: OMEPRAZOLE
  3. HCTZ 25MG UNICHEM LABORATORIES [Suspect]
     Active Substance: HYDROCHLOROTHIAZIDE
  4. TIMOLOL. [Concomitant]
     Active Substance: TIMOLOL
  5. CYCLOBENAZEPRINE [Concomitant]
  6. LISINOPRIL. [Concomitant]
     Active Substance: LISINOPRIL

REACTIONS (6)
  - Drug administration error [None]
  - Increased tendency to bruise [None]
  - Dizziness [None]
  - Asthenia [None]
  - Product commingling [None]
  - Epistaxis [None]

NARRATIVE: CASE EVENT DATE: 20150811
